FAERS Safety Report 5002569-5 (Version None)
Quarter: 2006Q2

REPORT INFORMATION
  Report Type: 
  Country: None (occurrence: None)
  Receive Date: 20060515
  Receipt Date: 20051114
  Transmission Date: 20061013
  Serious: Yes (Hospitalization)
  Sender: FDA-Public Use
  Company Number: US-MERCK-0511USA02229

PATIENT
  Age: 62 Year
  Sex: Female
  Weight: 50 kg

DRUGS (36)
  1. PHENAZOPYRIDINE HCL TAB [Concomitant]
     Route: 065
  2. CEPHALEXIN [Concomitant]
     Route: 065
  3. VIOXX [Suspect]
     Indication: OSTEOARTHRITIS
     Route: 048
     Dates: start: 20000706, end: 20041004
  4. SULFAMETHOXAZOLE AND TRIMETHOPRIM [Concomitant]
     Route: 065
  5. FLUOXETINE [Concomitant]
     Route: 065
  6. ACETAMINOPHEN AND CODEINE [Concomitant]
     Route: 065
  7. CEFUROXIME [Concomitant]
     Route: 065
  8. ASPIRIN [Concomitant]
     Route: 065
  9. FOSAMAX [Concomitant]
     Route: 065
  10. CLARITIN [Concomitant]
     Route: 065
  11. PSEUDOEPHEDRINE [Concomitant]
     Route: 065
  12. NORVASC [Concomitant]
     Route: 065
  13. PROPOXYPHENE NAPSYLATE [Concomitant]
     Route: 065
  14. PREMARIN [Concomitant]
     Route: 065
  15. MEDROXYPROGESTERONE ACETATE [Concomitant]
     Route: 065
  16. AVELOX [Concomitant]
     Route: 065
  17. CEFTIN [Concomitant]
     Route: 065
  18. ANEXSIA [Concomitant]
     Route: 065
  19. SKELAXIN [Concomitant]
     Route: 065
  20. DIFLUCAN [Concomitant]
     Route: 065
  21. ACEBUTOLOL [Concomitant]
     Route: 065
  22. NITROQUICK [Concomitant]
     Route: 065
  23. LIPITOR [Concomitant]
     Route: 065
  24. HYDROCHLOROTHIAZIDE [Concomitant]
     Route: 065
  25. ATENOLOL [Concomitant]
     Route: 065
  26. ALTACE [Concomitant]
     Route: 065
  27. GUAIFENESIN [Concomitant]
     Route: 065
  28. LORATADINE [Concomitant]
     Route: 065
  29. PROTONIX [Concomitant]
     Route: 065
  30. AMOXICILLIN AND CLAVULANATE POTASSIUM [Concomitant]
     Route: 065
  31. ISOSORBIDE [Concomitant]
     Route: 065
  32. CIPROFLOXACIN [Concomitant]
     Route: 065
  33. METRONIDAZOLE [Concomitant]
     Route: 065
  34. MUCO-FEN DM [Concomitant]
     Route: 065
  35. RHINOCORT [Concomitant]
     Route: 065
  36. CLARINEX [Concomitant]
     Route: 065

REACTIONS (28)
  - AMBLYOPIA [None]
  - ANAEMIA [None]
  - ASTHENIA [None]
  - BLOOD CHOLESTEROL INCREASED [None]
  - BLOOD TRIGLYCERIDES INCREASED [None]
  - CORONARY ARTERY DISEASE [None]
  - CORONARY ARTERY STENOSIS [None]
  - DEPRESSION [None]
  - DIARRHOEA [None]
  - DIZZINESS [None]
  - DRUG INTOLERANCE [None]
  - DYSLIPIDAEMIA [None]
  - DYSPEPSIA [None]
  - GASTROOESOPHAGEAL REFLUX DISEASE [None]
  - HEADACHE [None]
  - HYPERTENSION [None]
  - MYOCARDIAL INFARCTION [None]
  - NEPHROLITHIASIS [None]
  - PYELONEPHRITIS [None]
  - RHINITIS [None]
  - SELF-MEDICATION [None]
  - TREATMENT NONCOMPLIANCE [None]
  - TREMOR [None]
  - TRICUSPID VALVE INCOMPETENCE [None]
  - UPPER RESPIRATORY TRACT INFECTION [None]
  - UTERINE DISORDER [None]
  - UTERINE LEIOMYOMA [None]
  - VISUAL DISTURBANCE [None]
